FAERS Safety Report 8543248 (Version 2)
Quarter: 2013Q1

REPORT INFORMATION
  Report Type: Spontaneous
  Country: US (occurrence: US)
  Receive Date: 20120502
  Receipt Date: 20130215
  Transmission Date: 20140127
  Serious: Yes (Hospitalization, Other)
  Sender: FDA-Public Use
  Company Number: US-ELI_LILLY_AND_COMPANY-US201203003216

PATIENT
  Age: 82 Year
  Sex: Female

DRUGS (9)
  1. FORTEO [Suspect]
     Indication: OSTEOPOROSIS
     Dosage: 20 UG, QD
     Dates: start: 2011, end: 201202
  2. FORTEO [Suspect]
     Dosage: 20 UG, QD
     Dates: start: 2011, end: 201202
  3. SYNTHROID [Concomitant]
     Dosage: 75 MG, QD
  4. LISINOPRIL [Concomitant]
     Dosage: 10 MG, QD
  5. ASPIRIN [Concomitant]
     Dosage: 81 MG, QD
  6. OMEPRAZOLE [Concomitant]
     Dosage: 40 MG, QD
  7. VITAMIN D [Concomitant]
     Dosage: 1000 U, QD
  8. LOMOTIL [Concomitant]
     Dosage: 2.5 MG, QD
  9. PREVALITE [Concomitant]
     Dosage: 2.5 MG, QD

REACTIONS (9)
  - Jaundice [Unknown]
  - Bile duct cancer [Unknown]
  - Bursitis [Unknown]
  - Cataract operation [Unknown]
  - Memory impairment [Not Recovered/Not Resolved]
  - Fatigue [Unknown]
  - Asthenia [Unknown]
  - Weight decreased [Unknown]
  - Bile duct obstruction [Unknown]
